FAERS Safety Report 4822257-5 (Version None)
Quarter: 2005Q4

REPORT INFORMATION
  Report Type: 
  Country: None (occurrence: None)
  Receive Date: 20051103
  Receipt Date: 20051014
  Transmission Date: 20060501
  Serious: Yes (Other)
  Sender: FDA-Public Use
  Company Number: USA0510110924

PATIENT
  Age: 58 Year
  Sex: Female

DRUGS (1)
  1. FORTEO [Suspect]
     Dates: start: 20051011

REACTIONS (8)
  - ASTHENIA [None]
  - FALL [None]
  - FEELING ABNORMAL [None]
  - FEELING HOT [None]
  - HEADACHE [None]
  - LOSS OF CONSCIOUSNESS [None]
  - MALAISE [None]
  - VOMITING [None]
